FAERS Safety Report 23973054 (Version 1)
Quarter: 2024Q2

REPORT INFORMATION
  Report Type: Spontaneous
  Country: US (occurrence: None)
  Receive Date: 20240613
  Receipt Date: 20240613
  Transmission Date: 20240715
  Serious: Yes (Hospitalization)
  Sender: FDA-Public Use
  Company Number: US-MDD US Operations-MDD202306-002250

PATIENT
  Age: 70 Year
  Sex: Male
  Weight: 102.05 kg

DRUGS (17)
  1. APOKYN [Suspect]
     Active Substance: APOMORPHINE HYDROCHLORIDE
     Indication: Parkinson^s disease
     Dosage: NOT PROVIDED
  2. APOKYN [Suspect]
     Active Substance: APOMORPHINE HYDROCHLORIDE
     Route: 058
     Dates: start: 2021, end: 20240112
  3. SELEGILINE [Concomitant]
     Active Substance: SELEGILINE
  4. POTASSIUM CHLORIDE [Concomitant]
     Active Substance: POTASSIUM CHLORIDE
  5. CARBIDOPA\LEVODOPA [Concomitant]
     Active Substance: CARBIDOPA\LEVODOPA
     Dosage: EACH DF OF 37.5/150 MGS
  6. CARBIDOPA\LEVODOPA [Concomitant]
     Active Substance: CARBIDOPA\LEVODOPA
     Dosage: EACH DF OF 50/200 MG
  7. AMANTADINE [Concomitant]
     Active Substance: AMANTADINE
  8. LASIX [Concomitant]
     Active Substance: FUROSEMIDE
  9. LASIX [Concomitant]
     Active Substance: FUROSEMIDE
  10. GABAPENTIN [Concomitant]
     Active Substance: GABAPENTIN
  11. METAMUCIL [Concomitant]
     Active Substance: PLANTAGO SEED
  12. EXELON [Concomitant]
     Active Substance: RIVASTIGMINE TARTRATE
  13. KLONOPIN [Concomitant]
     Active Substance: CLONAZEPAM
  14. POTASSIUM [Concomitant]
     Active Substance: POTASSIUM
  15. ENTACAPONE [Concomitant]
     Active Substance: ENTACAPONE
     Dosage: 37.5/150/200
  16. CARBAMIDE PEROXIDE [Concomitant]
     Active Substance: CARBAMIDE PEROXIDE
     Dosage: IN BOTH EARS
  17. PSYLLIUM [Concomitant]
     Active Substance: PLANTAGO SEED

REACTIONS (5)
  - Hallucination [Not Recovered/Not Resolved]
  - Fall [Unknown]
  - Dehydration [Unknown]
  - Hallucination [Unknown]
  - Fall [Unknown]

NARRATIVE: CASE EVENT DATE: 20231210
